FAERS Safety Report 20420402 (Version 1)
Quarter: 2022Q1

REPORT INFORMATION
  Report Type: Spontaneous
  Country: US (occurrence: US)
  Receive Date: 20220203
  Receipt Date: 20220203
  Transmission Date: 20220423
  Serious: Yes (Death)
  Sender: FDA-Public Use
  Company Number: US-TEVA-2022-US-2003210

PATIENT
  Age: 59 Year
  Sex: Male
  Weight: 127 kg

DRUGS (6)
  1. VALSARTAN [Suspect]
     Active Substance: VALSARTAN
     Indication: Hypertension
     Dosage: DOSE: 5-160 MG
     Route: 065
     Dates: end: 2018
  2. AMLODIPINE\VALSARTAN [Suspect]
     Active Substance: AMLODIPINE\VALSARTAN
     Indication: Hypertension
     Dosage: DOSE: 5-160 MG
     Dates: start: 2017
  3. TIZANIDINE [Concomitant]
     Active Substance: TIZANIDINE
     Indication: Muscle relaxant therapy
     Dosage: 4 MILLIGRAM DAILY;
     Route: 065
     Dates: start: 2017, end: 2018
  4. ATORVASTATIN [Concomitant]
     Active Substance: ATORVASTATIN
     Indication: Mineral supplementation
     Dosage: 40 MILLIGRAM DAILY;
     Route: 065
     Dates: start: 2015, end: 2018
  5. DICLOFENAC [Concomitant]
     Active Substance: DICLOFENAC
     Indication: Back pain
     Dosage: 150 MILLIGRAM DAILY;
     Route: 065
     Dates: start: 2016, end: 2018
  6. ASPIRIN [Concomitant]
     Active Substance: ASPIRIN
     Indication: Anticoagulant therapy
     Dosage: 81 MILLIGRAM DAILY;
     Route: 065
     Dates: start: 2015, end: 2017

REACTIONS (2)
  - Pancreatic carcinoma stage IV [Fatal]
  - Metastatic neoplasm [Fatal]
